FAERS Safety Report 17537011 (Version 1)
Quarter: 2020Q1

REPORT INFORMATION
  Report Type: Spontaneous
  Country: FI (occurrence: FI)
  Receive Date: 20200313
  Receipt Date: 20200313
  Transmission Date: 20200409
  Serious: Yes (Hospitalization, Other)
  Sender: FDA-Public Use
  Company Number: FI-SA-2018SA159563

PATIENT
  Age: 33 Year
  Sex: Male
  Weight: 76 kg

DRUGS (9)
  1. LEMTRADA [Suspect]
     Active Substance: ALEMTUZUMAB
     Indication: MULTIPLE SCLEROSIS
     Dosage: 12 MG, QD
     Route: 041
     Dates: start: 20170724, end: 20170726
  2. VALAVIR [VALACICLOVIR HYDROCHLORIDE] [Concomitant]
     Dosage: 500 MG, BID
     Route: 065
     Dates: start: 201707
  3. MAVENCLAD [Suspect]
     Active Substance: CLADRIBINE
     Dosage: UNK
     Route: 065
     Dates: start: 20190725
  4. LEMTRADA [Suspect]
     Active Substance: ALEMTUZUMAB
     Dosage: 12 MG, QD
     Route: 041
     Dates: start: 20160704, end: 20160708
  5. SOLU-MEDROL [Concomitant]
     Active Substance: METHYLPREDNISOLONE SODIUM SUCCINATE
     Dosage: 1 G, QD
     Route: 065
     Dates: start: 201707, end: 201707
  6. HISTEC [Concomitant]
     Active Substance: CETIRIZINE HYDROCHLORIDE
     Dosage: 10 G, QD
     Route: 065
     Dates: start: 201707, end: 201707
  7. MAVENCLAD [Suspect]
     Active Substance: CLADRIBINE
     Dosage: UNK
     Route: 065
     Dates: start: 20190524
  8. LYRICA [Concomitant]
     Active Substance: PREGABALIN
     Indication: NEURALGIA
     Route: 048
     Dates: start: 201407
  9. PANADOL [Concomitant]
     Active Substance: ACETAMINOPHEN
     Dosage: 1 G, QD
     Route: 065
     Dates: start: 201707, end: 201707

REACTIONS (14)
  - Joint injury [Recovered/Resolved]
  - Epistaxis [Recovered/Resolved]
  - Haematoma [Unknown]
  - Multiple sclerosis relapse [Recovered/Resolved]
  - B-lymphocyte count decreased [Recovered/Resolved]
  - Multiple sclerosis [Recovered/Resolved]
  - Blood folate decreased [Unknown]
  - Contusion [Recovered/Resolved]
  - Platelet count decreased [Recovering/Resolving]
  - Herpes zoster [Recovered/Resolved]
  - Petechiae [Recovered/Resolved]
  - Rash vesicular [Recovered/Resolved]
  - Immune thrombocytopenic purpura [Recovering/Resolving]
  - Pain [Recovered/Resolved]

NARRATIVE: CASE EVENT DATE: 201701
